FAERS Safety Report 6227715-7 (Version None)
Quarter: 2009Q2

REPORT INFORMATION
  Report Type: 
  Country: None (occurrence: None)
  Receive Date: 20090612
  Receipt Date: 20090605
  Transmission Date: 20091009
  Serious: Yes (Other)
  Sender: FDA-Public Use
  Company Number: GB-NOVOPROD-271841

PATIENT
  Sex: Female
  Weight: 60 kg

DRUGS (19)
  1. NOVORAPID [Suspect]
     Indication: TYPE 1 DIABETES MELLITUS
     Dosage: 24 IU, QD
     Route: 058
     Dates: start: 20080122
  2. LEVEMIR [Suspect]
     Indication: TYPE 1 DIABETES MELLITUS
     Dosage: 26 IU, QD
     Route: 058
     Dates: start: 20080122
  3. NOVOMIX 30 FLEXPEN [Suspect]
     Indication: TYPE 1 DIABETES MELLITUS
     Route: 058
     Dates: start: 19920101
  4. VENTOLIN [Concomitant]
     Route: 055
  5. PHOLCODINE LINCTUS [Concomitant]
     Dates: start: 20071120
  6. PHOLCODINE LINCTUS [Concomitant]
     Dates: start: 20080311
  7. METOCLOPRAMID                      /00041901/ [Concomitant]
     Dosage: 10 G, QD
     Dates: start: 20071212
  8. LACTULOSE [Concomitant]
     Dosage: 500 ML, UNK
     Dates: start: 20080118
  9. FOLIC ACID [Concomitant]
     Dosage: 5 G, UNK
     Dates: start: 20071115
  10. FOLIC ACID [Concomitant]
     Dosage: 400 UNK, UNK
     Dates: start: 20080118
  11. GAVISCON [Concomitant]
  12. PARACETAMOL [Concomitant]
     Dosage: 500 MG, BID
     Route: 048
     Dates: start: 20080409
  13. AMOXICILLIN [Concomitant]
     Dosage: 500 MG, QD
     Route: 048
     Dates: start: 20080215
  14. PERMETHRIN [Concomitant]
     Route: 062
     Dates: start: 20080215
  15. FUCIDIN H                          /00524501/ [Concomitant]
     Dates: start: 20080118
  16. CLOTRIMAZOL [Concomitant]
     Dosage: 10%
     Route: 062
     Dates: start: 20080104
  17. CLOTRIMAZOL [Concomitant]
     Dosage: 1%
  18. DERMOL                             /00337102/ [Concomitant]
     Dosage: UNK, UNK
     Route: 062
     Dates: start: 20080104
  19. PHOLCODIN [Concomitant]
     Dosage: 10 G, UNK
     Route: 048
     Dates: start: 20071212

REACTIONS (3)
  - BLOOD GLUCOSE INCREASED [None]
  - PREGNANCY [None]
  - PREMATURE RUPTURE OF MEMBRANES [None]
